FAERS Safety Report 11087471 (Version 2)
Quarter: 2015Q2

REPORT INFORMATION
  Report Type: Spontaneous
  Country: CN (occurrence: CN)
  Receive Date: 20150504
  Receipt Date: 20150618
  Transmission Date: 20150821
  Serious: Yes (Hospitalization, Other)
  Sender: FDA-Public Use
  Company Number: CN-GILEAD-2015-0149754

PATIENT
  Age: 45 Year
  Sex: Male

DRUGS (6)
  1. ADEFOVIR DIPIVOXIL. [Suspect]
     Active Substance: ADEFOVIR DIPIVOXIL
     Indication: HEPATITIS B
     Dosage: UNK
     Route: 048
  2. ADEFOVIR DIPIVOXIL. [Suspect]
     Active Substance: ADEFOVIR DIPIVOXIL
     Dosage: UNK
     Route: 048
  3. ENTECAVIR. [Suspect]
     Active Substance: ENTECAVIR
     Indication: HEPATITIS B
     Dosage: UNK
     Route: 048
  4. ENTECAVIR. [Suspect]
     Active Substance: ENTECAVIR
     Dosage: UNK
     Route: 048
  5. VIREAD [Suspect]
     Active Substance: TENOFOVIR DISOPROXIL FUMARATE
     Indication: HEPATITIS B
     Dosage: UNK
     Route: 048
     Dates: start: 20150324
  6. HEPTODIN [Suspect]
     Active Substance: LAMIVUDINE
     Indication: HEPATITIS B
     Dosage: UNK
     Route: 048
     Dates: start: 2003, end: 2009

REACTIONS (5)
  - Drug ineffective [Unknown]
  - Hepatic cirrhosis [Unknown]
  - Viral mutation identified [Unknown]
  - Ascites [Unknown]
  - Product physical issue [Unknown]

NARRATIVE: CASE EVENT DATE: 2007
